FAERS Safety Report 8522566-2 (Version None)
Quarter: 2012Q3

REPORT INFORMATION
  Report Type: 
  Country: None (occurrence: None)
  Receive Date: 20120719
  Receipt Date: 20120712
  Transmission Date: 20120928
  Serious: Yes (Other)
  Sender: FDA-Public Use
  Company Number: AU-JNJFOC-20120706958

PATIENT
  Sex: Male

DRUGS (2)
  1. STELARA [Suspect]
     Route: 058
     Dates: start: 20120423
  2. STELARA [Suspect]
     Indication: ILL-DEFINED DISORDER
     Route: 058
     Dates: start: 20110201

REACTIONS (1)
  - PNEUMONIA [None]
